FAERS Safety Report 8259757-4 (Version None)
Quarter: 2012Q2

REPORT INFORMATION
  Report Type: 
  Country: None (occurrence: None)
  Receive Date: 20120403
  Receipt Date: 20120112
  Transmission Date: 20120825
  Serious: No
  Sender: FDA-Public Use
  Company Number: DL2012-0045

PATIENT
  Age: 23 Year
  Sex: Female

DRUGS (3)
  1. MISOPROSTOL [Suspect]
     Dosage: 800 MCG, VAGINAL
     Route: 067
     Dates: start: 20111208
  2. MISOPROSTOL [Suspect]
     Dosage: 800 MCG, VAGINAL
     Route: 067
     Dates: start: 20111227
  3. MIFEPRISTONE (MIFEPREX) [Suspect]
     Indication: ABORTION INDUCED
     Dosage: 200 MG, ORAL
     Route: 048
     Dates: start: 20111206

REACTIONS (1)
  - ABORTION INCOMPLETE [None]
